FAERS Safety Report 14390491 (Version 4)
Quarter: 2018Q2

REPORT INFORMATION
  Report Type: Spontaneous
  Country: BR (occurrence: BR)
  Receive Date: 20180116
  Receipt Date: 20180507
  Transmission Date: 20180711
  Serious: Yes (Hospitalization, Other)
  Sender: FDA-Public Use
  Company Number: BR-AUROBINDO-AUR-APL-2018-001214

PATIENT
  Age: 69 Year
  Sex: Female
  Weight: 79 kg

DRUGS (22)
  1. RANITIDINE. [Concomitant]
     Active Substance: RANITIDINE
     Dosage: 150 MG, EVERY 12 HOURS
     Route: 048
     Dates: start: 20180102, end: 20180103
  2. ATENOLOL. [Concomitant]
     Active Substance: ATENOLOL
     Dosage: UNK
     Route: 048
     Dates: start: 20171229, end: 20180103
  3. OMEPRAZOLE. [Concomitant]
     Active Substance: OMEPRAZOLE
     Indication: ULCER
     Dosage: 40 MG, UNK
     Route: 048
     Dates: start: 20171222, end: 20171227
  4. DIAZEPAM. [Concomitant]
     Active Substance: DIAZEPAM
     Indication: ANXIOLYTIC THERAPY
     Dosage: 5 MG, UNK
     Route: 048
     Dates: start: 20171222, end: 20180103
  5. CLOPIDOGREL [Suspect]
     Active Substance: CLOPIDOGREL BISULFATE
     Indication: ANTIPLATELET THERAPY
     Dosage: 75 MG, UNK
     Route: 048
     Dates: start: 20171219
  6. RANITIDINE. [Concomitant]
     Active Substance: RANITIDINE
     Indication: ULCER
     Dosage: 50 MG, EVERY 8 HRS
     Route: 042
     Dates: start: 20171219, end: 20171221
  7. ACETYLSALICYLIC ACID [Concomitant]
     Active Substance: ASPIRIN
     Indication: ANTIPLATELET THERAPY
     Dosage: 100 MG, UNK
     Route: 048
     Dates: start: 20171219, end: 20180103
  8. SIMVASTATIN. [Concomitant]
     Active Substance: SIMVASTATIN
     Indication: DYSLIPIDAEMIA
     Dosage: 40 MG, UNK
     Route: 048
     Dates: start: 20170119, end: 20180103
  9. DIPYRONE [Concomitant]
     Active Substance: DIPYRONE
     Dosage: 1 G, UNK
     Route: 042
     Dates: start: 20171228, end: 20180103
  10. ENALAPRIL [Concomitant]
     Active Substance: ENALAPRIL
     Indication: HYPERTENSION
     Dosage: 10 MG, UNK
     Route: 048
     Dates: start: 20171219, end: 20171221
  11. ATENOLOL. [Concomitant]
     Active Substance: ATENOLOL
     Dosage: 12.5 UNK, UNK
     Dates: start: 20171222, end: 20171227
  12. CLOPIDOGREL [Concomitant]
     Active Substance: CLOPIDOGREL BISULFATE
     Indication: ANTIPLATELET THERAPY
     Dosage: 75 MG, UNK
     Route: 048
     Dates: start: 20180103, end: 20180103
  13. LEVOTHYROXINE. [Concomitant]
     Active Substance: LEVOTHYROXINE
     Indication: THYROID DISORDER
     Dosage: 100 MCG, UNK
     Route: 048
     Dates: start: 20171219
  14. ENALAPRIL [Concomitant]
     Active Substance: ENALAPRIL
     Dosage: 5 UNK, UNK
     Route: 048
     Dates: start: 20171222, end: 20180103
  15. CIPROFLOXACINO                     /00697201/ [Concomitant]
     Indication: ANTIBIOTIC THERAPY
     Dosage: 500 MG, EVERY 12 HOURS
     Route: 048
     Dates: start: 20171220, end: 20171227
  16. DIPYRONE [Concomitant]
     Active Substance: DIPYRONE
     Dosage: 1 G, UNK
     Route: 048
     Dates: start: 20171222, end: 20171227
  17. RANITIDINE. [Concomitant]
     Active Substance: RANITIDINE
     Dosage: 50 MG, EVERY 8 HOURS
     Route: 042
     Dates: start: 20171228, end: 20180101
  18. DIPYRONE [Concomitant]
     Active Substance: DIPYRONE
     Indication: ANALGESIC THERAPY
     Dosage: UNK
     Route: 042
     Dates: start: 20171219, end: 20171221
  19. BROMOPRIDE [Concomitant]
     Active Substance: BROMOPRIDE
     Indication: ANTIEMETIC SUPPORTIVE CARE
     Dosage: UNK
     Route: 042
     Dates: start: 20171219, end: 20171221
  20. NICOTINE. [Concomitant]
     Active Substance: NICOTINE
     Indication: SMOKING CESSATION THERAPY
     Dosage: 7 MG, UNK
     Route: 062
     Dates: start: 20171226, end: 20171227
  21. ATENOLOL. [Concomitant]
     Active Substance: ATENOLOL
     Indication: HYPERTENSION
     Dosage: 25 MG, UNK
     Route: 048
     Dates: start: 20171219, end: 20171221
  22. ISOSORBID MONONITRATE [Concomitant]
     Active Substance: ISOSORBIDE MONONITRATE
     Indication: VASODILATION PROCEDURE
     Dosage: 20 MG, UNK
     Dates: start: 20171228, end: 20180103

REACTIONS (1)
  - Vascular stent thrombosis [Recovered/Resolved]

NARRATIVE: CASE EVENT DATE: 20171228
